FAERS Safety Report 11393192 (Version 4)
Quarter: 2015Q3

REPORT INFORMATION
  Report Type: Report from Study
  Country: BR (occurrence: BR)
  Receive Date: 20150818
  Receipt Date: 20150904
  Transmission Date: 20151125
  Serious: Yes (Death, Life-Threatening, Hospitalization, Other)
  Sender: FDA-Public Use
  Company Number: BR-BRISTOL-MYERS SQUIBB COMPANY-BMS-2015-055713

PATIENT
  Age: 69 Year
  Sex: Male
  Weight: 69 kg

DRUGS (1)
  1. NIVOLUMAB [Suspect]
     Active Substance: NIVOLUMAB
     Indication: MALIGNANT MELANOMA
     Dosage: 3 MG/KG, UNK
     Route: 042
     Dates: start: 20150625

REACTIONS (3)
  - Abdominal sepsis [Fatal]
  - Intestinal perforation [Fatal]
  - Aplasia pure red cell [Not Recovered/Not Resolved]

NARRATIVE: CASE EVENT DATE: 20150804
